FAERS Safety Report 4402304-5 (Version None)
Quarter: 2004Q3

REPORT INFORMATION
  Report Type: 
  Country: None (occurrence: None)
  Receive Date: 20040720
  Receipt Date: 20040712
  Transmission Date: 20050211
  Serious: Yes (Other)
  Sender: FDA-Public Use
  Company Number: FR-GLAXOSMITHKLINE-B0338986A

PATIENT
  Age: 34 Year
  Sex: Female
  Weight: 93.7 kg

DRUGS (8)
  1. EPIVIR [Suspect]
     Indication: HIV INFECTION
     Route: 048
     Dates: start: 20001015, end: 20040419
  2. COMBIVIR [Suspect]
     Indication: HIV INFECTION
     Dosage: 2TAB PER DAY
     Route: 048
     Dates: start: 20040419
  3. NORVIR [Suspect]
     Indication: HIV INFECTION
     Route: 048
     Dates: start: 20030115
  4. INVIRASE [Suspect]
     Indication: HIV INFECTION
     Route: 048
     Dates: start: 20001015
  5. TARDYFERON [Suspect]
     Route: 048
     Dates: start: 20040115
  6. FOLIC ACID [Suspect]
     Route: 048
     Dates: start: 20040115
  7. AMOXICILLIN [Concomitant]
     Indication: INFECTION
     Route: 048
     Dates: start: 20031101, end: 20031101
  8. RETROVIR [Concomitant]
     Indication: ANTIVIRAL PROPHYLAXIS
     Route: 042
     Dates: start: 20040205, end: 20040205

REACTIONS (9)
  - ALPHA 1 FOETOPROTEIN INCREASED [None]
  - DRUG EXPOSURE DURING PREGNANCY [None]
  - GESTATIONAL DIABETES [None]
  - INTRA-UTERINE DEATH [None]
  - METRORRHAGIA [None]
  - OLIGOHYDRAMNIOS [None]
  - PREGNANCY [None]
  - SMALL FOR DATES BABY [None]
  - VIRAL INFECTION [None]
